FAERS Safety Report 10695277 (Version 1)
Quarter: 2015Q1

REPORT INFORMATION
  Report Type: Spontaneous
  Country: CH (occurrence: CH)
  Receive Date: 20150107
  Receipt Date: 20150107
  Transmission Date: 20150721
  Serious: Yes (Other)
  Sender: FDA-Public Use
  Company Number: CH-ACTELION-A-CH2014-110604

PATIENT
  Age: 80 Year
  Sex: Female
  Weight: 91 kg

DRUGS (11)
  1. OPSUMIT [Suspect]
     Active Substance: MACITENTAN
     Indication: PULMONARY ARTERIAL HYPERTENSION
     Dosage: 10 MG, OD
     Route: 048
     Dates: start: 20141010, end: 20141016
  2. CORDARONE [Suspect]
     Active Substance: AMIODARONE HYDROCHLORIDE
     Indication: PRODUCT USED FOR UNKNOWN INDICATION
     Dosage: 200 MG, OD
     Route: 048
  3. ALDACTONE [Concomitant]
     Active Substance: SPIRONOLACTONE
     Dosage: 25 MG, OD
     Route: 048
  4. SINTROM [Concomitant]
     Active Substance: ACENOCOUMAROL
     Dosage: UNK, PRN
     Route: 048
  5. NITRODERM [Concomitant]
     Active Substance: NITROGLYCERIN
     Dosage: UNK
     Route: 048
  6. TOREM [Concomitant]
     Active Substance: TORSEMIDE
     Dosage: 20 MG, OD
     Route: 048
  7. ASPIRINE [Concomitant]
     Active Substance: ASPIRIN
     Dosage: 100 MG, OD
     Route: 048
  8. PANTOPRAZOLE [Suspect]
     Active Substance: PANTOPRAZOLE SODIUM
     Indication: PRODUCT USED FOR UNKNOWN INDICATION
     Dosage: 40 MG, OD
     Route: 048
  9. APROVEL [Concomitant]
     Active Substance: IRBESARTAN
     Dosage: 150 MG, OD
     Route: 048
  10. PRAVASTATIN [Concomitant]
     Active Substance: PRAVASTATIN\PRAVASTATIN SODIUM
     Dosage: 40 MG, OD
     Route: 048
  11. ALLOPURINOL. [Concomitant]
     Active Substance: ALLOPURINOL
     Dosage: 100 MG, OD
     Route: 048

REACTIONS (6)
  - Dyspnoea [Recovered/Resolved]
  - Drug interaction [Unknown]
  - Malaise [Recovered/Resolved]
  - Weight increased [Recovered/Resolved]
  - Generalised oedema [Recovered/Resolved]
  - Cardiac failure [Recovered/Resolved]

NARRATIVE: CASE EVENT DATE: 201410
